FAERS Safety Report 6145069-1 (Version None)
Quarter: 2009Q2

REPORT INFORMATION
  Report Type: 
  Country: None (occurrence: None)
  Receive Date: 20090401
  Receipt Date: 20090401
  Transmission Date: 20091009
  Serious: Yes (Hospitalization)
  Sender: FDA-Public Use
  Company Number: None

PATIENT
  Age: 65 Year
  Sex: Female
  Weight: 84.8226 kg

DRUGS (8)
  1. MORPHINE [Suspect]
     Indication: ARTHRALGIA
     Dosage: 30MG BID PO
     Route: 048
     Dates: start: 20090311, end: 20090314
  2. PROCARDIA XL [Suspect]
     Indication: HYPERTENSION
     Dosage: 30MG QD PO
     Route: 048
     Dates: start: 20090311, end: 20090314
  3. CALCIUM CARBONATE [Concomitant]
  4. LOVENOX [Concomitant]
  5. MULTI-VITAMINS [Concomitant]
  6. WELLBUTRIN [Concomitant]
  7. LASIX [Concomitant]
  8. POTASSIUM CHLORIDE [Concomitant]

REACTIONS (7)
  - ABDOMINAL DISTENSION [None]
  - ABDOMINAL TENDERNESS [None]
  - DIZZINESS [None]
  - GASTROINTESTINAL SOUNDS ABNORMAL [None]
  - HYPOTENSION [None]
  - SEPSIS [None]
  - SYSTEMIC CANDIDA [None]
